FAERS Safety Report 8510970 (Version 7)
Quarter: 2013Q2

REPORT INFORMATION
  Report Type: Report from Study
  Country: PL (occurrence: PL)
  Receive Date: 20120413
  Receipt Date: 20130423
  Transmission Date: 20140414
  Serious: Yes (Death)
  Sender: FDA-Public Use
  Company Number: PL-ROCHE-1058643

PATIENT
  Age: 65 Year
  Sex: Female
  Weight: 51.6 kg

DRUGS (3)
  1. VEMURAFENIB [Suspect]
     Indication: METASTATIC MALIGNANT MELANOMA
     Route: 048
     Dates: start: 20120228, end: 20120406
  2. SIOFOR [Concomitant]
     Dosage: TOTAL DAILY DOSE
     Route: 065
     Dates: start: 20120301
  3. TRITACE [Concomitant]
     Dosage: TOTAL DAILY DOSE
     Route: 065
     Dates: start: 20120301

REACTIONS (2)
  - Death [Fatal]
  - Fatigue [Unknown]
